FAERS Safety Report 15379246 (Version 1)
Quarter: 2018Q4

REPORT INFORMATION
  Report Type: Spontaneous
  Country: CO (occurrence: CO)
  Receive Date: 20180913
  Receipt Date: 20180913
  Transmission Date: 20190204
  Serious: Yes (Hospitalization, Other)
  Sender: FDA-Public Use
  Company Number: CO-PFIZER INC-2018370548

PATIENT
  Age: 7 Year
  Sex: Female

DRUGS (8)
  1. AZATHIOPRINE. [Suspect]
     Active Substance: AZATHIOPRINE
     Indication: PEMPHIGUS
     Dosage: UNK
     Dates: start: 2009
  2. OXACILLIN [Suspect]
     Active Substance: OXACILLIN SODIUM
     Indication: PEMPHIGUS
     Dosage: UNK
     Dates: start: 200906
  3. THALIDOMIDE [Suspect]
     Active Substance: THALIDOMIDE
     Indication: PEMPHIGUS
     Dosage: UNK
     Dates: start: 2009
  4. METHYLPREDNISOLONE. [Suspect]
     Active Substance: METHYLPREDNISOLONE
     Indication: PEMPHIGUS
     Dosage: UNK
     Dates: start: 200906
  5. AZATHIOPRINE. [Suspect]
     Active Substance: AZATHIOPRINE
     Dosage: UNK
     Dates: start: 200906
  6. RITUXIMAB. [Suspect]
     Active Substance: RITUXIMAB
     Indication: PEMPHIGUS
     Dosage: UNK (4 DOSES)
     Dates: start: 200906
  7. IMMUNOGLOBULIN IV [Suspect]
     Active Substance: HUMAN IMMUNOGLOBULIN G
     Indication: PEMPHIGUS
     Dosage: UNK
     Route: 042
     Dates: start: 200906
  8. PREDNISONE. [Suspect]
     Active Substance: PREDNISONE
     Indication: PEMPHIGUS
     Dosage: UNK
     Route: 048
     Dates: start: 2009

REACTIONS (4)
  - Skin infection [Unknown]
  - Cushing^s syndrome [Unknown]
  - Cataract [Unknown]
  - Myopathy [Unknown]
